FAERS Safety Report 11196078 (Version 1)
Quarter: 2015Q2

REPORT INFORMATION
  Report Type: Spontaneous
  Country: CA (occurrence: CA)
  Receive Date: 20150617
  Receipt Date: 20150617
  Transmission Date: 20150821
  Serious: Yes (Other)
  Sender: FDA-Public Use
  Company Number: CA-HOSPIRA-2895829

PATIENT
  Sex: Male

DRUGS (8)
  1. LIORESAL [Suspect]
     Active Substance: BACLOFEN
     Indication: PRODUCT USED FOR UNKNOWN INDICATION
     Route: 037
  2. LIORESAL [Suspect]
     Active Substance: BACLOFEN
     Indication: PRODUCT USED FOR UNKNOWN INDICATION
     Dosage: 0.6 MILLIGRAMS/ MILLILITERS
     Route: 037
  3. LIORESAL [Suspect]
     Active Substance: BACLOFEN
     Indication: PRODUCT USED FOR UNKNOWN INDICATION
     Route: 037
  4. LIORESAL [Suspect]
     Active Substance: BACLOFEN
     Indication: PRODUCT USED FOR UNKNOWN INDICATION
     Route: 037
  5. LIORESAL [Suspect]
     Active Substance: BACLOFEN
     Indication: PRODUCT USED FOR UNKNOWN INDICATION
     Route: 037
  6. LIORESAL [Suspect]
     Active Substance: BACLOFEN
     Indication: PRODUCT USED FOR UNKNOWN INDICATION
     Route: 037
  7. VANCOMYCIN HYDROCHLORIDE. [Suspect]
     Active Substance: VANCOMYCIN HYDROCHLORIDE
     Indication: PRODUCT USED FOR UNKNOWN INDICATION
     Route: 037
  8. LIORESAL [Suspect]
     Active Substance: BACLOFEN
     Indication: PRODUCT USED FOR UNKNOWN INDICATION
     Route: 037

REACTIONS (21)
  - Infection [Unknown]
  - Muscle spasticity [Unknown]
  - Pyrexia [Unknown]
  - Impaired healing [Unknown]
  - Meningitis bacterial [Unknown]
  - Therapeutic response decreased [Unknown]
  - Hypotonia [Unknown]
  - Chills [Unknown]
  - Muscle spasms [Unknown]
  - Pain [Unknown]
  - Abdominal rigidity [Unknown]
  - Implant site erythema [Unknown]
  - Implant site inflammation [Unknown]
  - Infusion site mass [Unknown]
  - Staphylococcal infection [Unknown]
  - No therapeutic response [Unknown]
  - Headache [Unknown]
  - Implant site vesicles [Unknown]
  - Overdose [Unknown]
  - Discomfort [Unknown]
  - Implant site mass [Unknown]
